FAERS Safety Report 4943496-9 (Version None)
Quarter: 2006Q1

REPORT INFORMATION
  Report Type: 
  Country: None (occurrence: None)
  Receive Date: 20060309
  Receipt Date: 20060228
  Transmission Date: 20060701
  Serious: Yes (Other)
  Sender: FDA-Public Use
  Company Number: 2006-02-1978

PATIENT
  Age: 72 Year
  Sex: Male

DRUGS (4)
  1. TEMODAR [Suspect]
     Indication: GLIOMA
     Dosage: 75 MG/M^2 ORAL
     Route: 048
     Dates: start: 20051101, end: 20051223
  2. RADIATION THERAPY NO DOSE FORM [Suspect]
     Indication: GLIOMA
     Dosage: X-RAY THERAPY
  3. PHENYTOIN [Suspect]
     Dosage: ORAL
     Route: 048
  4. STEROIDS (NOS) [Suspect]

REACTIONS (6)
  - ASTHENIA [None]
  - BRADYPHRENIA [None]
  - COORDINATION ABNORMAL [None]
  - DIFFICULTY IN WALKING [None]
  - FLAT AFFECT [None]
  - MYOPATHY STEROID [None]
